FAERS Safety Report 5958561-7 (Version None)
Quarter: 2008Q4

REPORT INFORMATION
  Report Type: 
  Country: None (occurrence: None)
  Receive Date: 20081119
  Receipt Date: 20081107
  Transmission Date: 20090506
  Serious: No
  Sender: FDA-Public Use
  Company Number: US-PFIZER INC-2008080740

PATIENT
  Sex: Female
  Weight: 77.3 kg

DRUGS (6)
  1. LYRICA [Suspect]
     Indication: FIBROMYALGIA
     Route: 048
     Dates: start: 20071001
  2. CYMBALTA [Suspect]
     Indication: FIBROMYALGIA
     Route: 048
     Dates: start: 20071001
  3. TRAZODONE HCL [Concomitant]
     Dosage: DAILY DOSE:100MG-FREQ:AT BEDTIME
     Dates: start: 20071010
  4. ALPRAZOLAM [Concomitant]
     Dosage: DAILY DOSE:.5MG
  5. ZANAFLEX [Concomitant]
     Dosage: DAILY DOSE:2MG
  6. ZEGERID [Concomitant]
     Dosage: TEXT:40/1,000-FREQ:AT BEDTIME

REACTIONS (2)
  - MEMORY IMPAIRMENT [None]
  - NEGATIVE THOUGHTS [None]
